FAERS Safety Report 4434549-2 (Version None)
Quarter: 2004Q3

REPORT INFORMATION
  Report Type: 
  Country: None (occurrence: None)
  Receive Date: 20040721
  Receipt Date: 20031119
  Transmission Date: 20050211
  Serious: Yes (Life-Threatening, Hospitalization)
  Sender: FDA-Public Use
  Company Number: WAES 0311USA02238

PATIENT
  Age: 77 Year
  Sex: Female
  Weight: 105.2345 kg

DRUGS (2)
  1. VIOXX [Suspect]
     Indication: ARTHRALGIA
     Dosage: 25 MG/DAILY/PO
     Route: 048
     Dates: start: 20030604, end: 20030902
  2. VIOXX [Suspect]
     Indication: OSTEOARTHRITIS
     Dosage: 25 MG/DAILY/PO
     Route: 048
     Dates: start: 20030604, end: 20030902

REACTIONS (1)
  - GASTROINTESTINAL HAEMORRHAGE [None]
